FAERS Safety Report 21549884 (Version 2)
Quarter: 2022Q4

REPORT INFORMATION
  Report Type: Spontaneous
  Country: CA (occurrence: CA)
  Receive Date: 20221103
  Receipt Date: 20221117
  Transmission Date: 20230113
  Serious: Yes (Death)
  Sender: FDA-Public Use
  Company Number: CA-PFIZER INC-202200725603

PATIENT
  Age: 80 Year
  Sex: Female

DRUGS (2)
  1. INLYTA [Suspect]
     Active Substance: AXITINIB
     Indication: Renal cancer metastatic
     Dosage: 2 MG, (2-3MG TO START, THEN INCREASE TO 5MG) 2X/DAY
     Route: 048
     Dates: start: 20220519
  2. KEYTRUDA [Concomitant]
     Active Substance: PEMBROLIZUMAB
     Indication: Renal cancer metastatic
     Dosage: UNK

REACTIONS (4)
  - Neoplasm progression [Fatal]
  - Off label use [Unknown]
  - Off label use [Unknown]
  - Product use issue [Unknown]

NARRATIVE: CASE EVENT DATE: 20220624
